FAERS Safety Report 5492365-7 (Version None)
Quarter: 2007Q4

REPORT INFORMATION
  Report Type: 
  Country: None (occurrence: None)
  Receive Date: 20071015
  Receipt Date: 20070815
  Transmission Date: 20080405
  Serious: No
  Sender: FDA-Public Use
  Company Number: 2007SP002867

PATIENT
  Age: 50 Year
  Sex: Male
  Weight: 79.3795 kg

DRUGS (5)
  1. LUNESTA [Suspect]
     Indication: INSOMNIA
     Dosage: 3 MG; PRN; ORAL
     Route: 048
     Dates: start: 20070201
  2. VITAMIN CAP [Concomitant]
  3. LYSINE [Concomitant]
  4. XANAX [Concomitant]
  5. AMBIEN [Concomitant]

REACTIONS (4)
  - DRUG DEPENDENCE [None]
  - LOWER RESPIRATORY TRACT INFECTION [None]
  - NASAL CONGESTION [None]
  - NASOPHARYNGITIS [None]
